FAERS Safety Report 18902212 (Version 1)
Quarter: 2021Q1

REPORT INFORMATION
  Report Type: Spontaneous
  Country: CA (occurrence: CA)
  Receive Date: 20210216
  Receipt Date: 20210216
  Transmission Date: 20210420
  Serious: Yes (Hospitalization)
  Sender: FDA-Public Use
  Company Number: CA-CELGENEUS-CAN-20210203104

PATIENT
  Age: 30 Year
  Sex: Female

DRUGS (44)
  1. HYDROMORPHONE [Concomitant]
     Active Substance: HYDROMORPHONE
     Indication: ABDOMINAL PAIN
     Route: 065
  2. LORAZEPAM. [Concomitant]
     Active Substance: LORAZEPAM
     Indication: NAUSEA
     Route: 065
  3. SALBUTAMOL [Concomitant]
     Active Substance: ALBUTEROL
     Indication: DYSPNOEA
     Route: 065
  4. DURVALUMAB. [Suspect]
     Active Substance: DURVALUMAB
     Dosage: 1500 MILLIGRAM
     Route: 042
  5. DURVALUMAB. [Suspect]
     Active Substance: DURVALUMAB
     Dosage: 1500 MILLIGRAM
     Route: 042
  6. DURVALUMAB. [Suspect]
     Active Substance: DURVALUMAB
     Dosage: 1500 MILLIGRAM
     Route: 041
  7. GEMCITABINE. [Suspect]
     Active Substance: GEMCITABINE
     Indication: PANCREATIC CARCINOMA METASTATIC
     Route: 042
  8. GEMCITABINE. [Suspect]
     Active Substance: GEMCITABINE
     Route: 042
  9. TICILIMUMAB [Suspect]
     Active Substance: TREMELIMUMAB
     Route: 042
  10. TYLENOL [Concomitant]
     Active Substance: ACETAMINOPHEN
     Indication: PRODUCT USED FOR UNKNOWN INDICATION
     Route: 065
  11. ABRAXANE [Suspect]
     Active Substance: PACLITAXEL
     Dosage: 250 MILLIGRAM
     Route: 041
  12. DURVALUMAB. [Suspect]
     Active Substance: DURVALUMAB
     Dosage: 1500 MILLIGRAM
     Route: 042
  13. ARIPIPRAZOLE. [Concomitant]
     Active Substance: ARIPIPRAZOLE
     Indication: ANXIETY
     Route: 065
  14. LORAZEPAM. [Concomitant]
     Active Substance: LORAZEPAM
     Route: 065
  15. PANTOLOC [Concomitant]
     Active Substance: PANTOPRAZOLE SODIUM
     Indication: ABDOMINAL DISCOMFORT
     Route: 048
  16. SALBUTAMOL [Concomitant]
     Active Substance: ALBUTEROL
     Route: 065
  17. DURVALUMAB. [Suspect]
     Active Substance: DURVALUMAB
     Dosage: 1500 MILLIGRAM
     Route: 041
  18. PACLITAXEL. [Suspect]
     Active Substance: PACLITAXEL
     Indication: PRODUCT USED FOR UNKNOWN INDICATION
     Route: 042
  19. FILGRASTIM [Concomitant]
     Active Substance: FILGRASTIM
     Indication: GROWTH HORMONE DEFICIENCY
     Route: 065
  20. LAXASENE [Concomitant]
     Active Substance: HERBALS\SENNA LEAF\SENNOSIDES
     Route: 065
  21. LAXASENE [Concomitant]
     Active Substance: HERBALS\SENNA LEAF\SENNOSIDES
     Route: 048
  22. VITAMIN C [Concomitant]
     Active Substance: ASCORBIC ACID
     Route: 065
  23. GEMCITABINE. [Suspect]
     Active Substance: GEMCITABINE
     Route: 041
  24. DEXAMETHASONE. [Concomitant]
     Active Substance: DEXAMETHASONE
     Indication: NAUSEA
     Route: 065
  25. LAXASENE [Concomitant]
     Active Substance: HERBALS\SENNA LEAF\SENNOSIDES
     Route: 065
  26. DURVALUMAB. [Suspect]
     Active Substance: DURVALUMAB
     Indication: PANCREATIC CARCINOMA METASTATIC
     Dosage: 1500 MILLIGRAM
     Route: 042
  27. DURVALUMAB. [Suspect]
     Active Substance: DURVALUMAB
     Dosage: 1500 MILLIGRAM
     Route: 041
  28. TICILIMUMAB [Suspect]
     Active Substance: TREMELIMUMAB
     Indication: PANCREATIC CARCINOMA METASTATIC
     Route: 041
  29. LEVOMEPROMAZINE [Concomitant]
     Active Substance: LEVOMEPROMAZINE
     Indication: NAUSEA
     Route: 065
  30. PANTOLOC [Concomitant]
     Active Substance: PANTOPRAZOLE SODIUM
     Route: 065
  31. VITAMIN C [Concomitant]
     Active Substance: ASCORBIC ACID
     Indication: VITAMIN C DEFICIENCY
     Route: 065
  32. DURVALUMAB. [Suspect]
     Active Substance: DURVALUMAB
     Dosage: 1500 MILLIGRAM
     Route: 041
  33. GEMCITABINE. [Suspect]
     Active Substance: GEMCITABINE
     Route: 041
  34. PACLITAXEL. [Suspect]
     Active Substance: PACLITAXEL
     Route: 042
  35. TICILIMUMAB [Suspect]
     Active Substance: TREMELIMUMAB
     Route: 041
  36. HYDROMORPHONE [Concomitant]
     Active Substance: HYDROMORPHONE
     Route: 065
  37. LEVOMEPROMAZINE [Concomitant]
     Active Substance: LEVOMEPROMAZINE
     Route: 065
  38. ABRAXANE [Suspect]
     Active Substance: PACLITAXEL
     Indication: PANCREATIC CARCINOMA METASTATIC
     Route: 041
  39. DURVALUMAB. [Suspect]
     Active Substance: DURVALUMAB
     Dosage: 1500 MILLIGRAM
     Route: 042
  40. DURVALUMAB. [Suspect]
     Active Substance: DURVALUMAB
     Dosage: 1500 MILLIGRAM
     Route: 042
  41. TICILIMUMAB [Suspect]
     Active Substance: TREMELIMUMAB
     Route: 042
  42. ADVIL [Concomitant]
     Active Substance: IBUPROFEN
     Indication: BACK PAIN
     Route: 065
  43. DIPHENHYDRAMINE. [Concomitant]
     Active Substance: DIPHENHYDRAMINE
     Indication: RASH
     Route: 065
  44. LAXASENE [Concomitant]
     Active Substance: HERBALS\SENNA LEAF\SENNOSIDES
     Indication: CONSTIPATION
     Route: 065

REACTIONS (6)
  - Biliary tract infection [Not Recovered/Not Resolved]
  - Febrile neutropenia [Not Recovered/Not Resolved]
  - Cholangitis infective [Not Recovered/Not Resolved]
  - Bacillus infection [Not Recovered/Not Resolved]
  - Photosensitivity reaction [Not Recovered/Not Resolved]
  - Pyrexia [Not Recovered/Not Resolved]
